FAERS Safety Report 10037841 (Version 1)
Quarter: 2014Q1

REPORT INFORMATION
  Report Type: Spontaneous
  Country: US (occurrence: None)
  Receive Date: 20140306
  Receipt Date: 20140306
  Transmission Date: 20141002
  Serious: Yes (Hospitalization)
  Sender: FDA-Public Use
  Company Number: 163-21880-13062219

PATIENT
  Age: 72 Year
  Sex: Male

DRUGS (9)
  1. REVLIMID (LENALIDOMIDE) (CAPSULES) [Suspect]
     Indication: MYELODYSPLASTIC SYNDROME
     Route: 048
     Dates: start: 20130531
  2. ALLOPURINOL (ALLOPURINOL) [Concomitant]
  3. ASPIRIN (ACETYLSALICYLIC ACID) [Concomitant]
  4. CHANTIX (VARENICLINE TARTRATE) [Concomitant]
  5. EPERISONE (EPERISONE) [Concomitant]
  6. FUROSEMIDE (FUROSEMIDE) [Concomitant]
  7. MAGOX 400 (MAGNESIUM OXIDE) [Concomitant]
  8. METOPROLOL TARTRATE (METOPROLOL TARTRATE) [Concomitant]
  9. NIASPAN (NICOTINIC ACID) [Concomitant]

REACTIONS (3)
  - Red blood cell count decreased [None]
  - Muscle spasms [None]
  - Muscle spasms [None]
